FAERS Safety Report 7450118-4 (Version None)
Quarter: 2011Q2

REPORT INFORMATION
  Report Type: 
  Country: None (occurrence: None)
  Receive Date: 20110502
  Receipt Date: 20110419
  Transmission Date: 20111010
  Serious: No
  Sender: FDA-Public Use
  Company Number: US-B.I. PHARMACEUTICALS,INC./RIDGEFIELD-2011-BP-11283BP

PATIENT
  Age: 85 Year
  Sex: Male

DRUGS (16)
  1. BYSTOLIC [Concomitant]
     Indication: HYPERTENSION
     Dates: start: 20080101
  2. SPIRIVA [Suspect]
     Indication: CHRONIC OBSTRUCTIVE PULMONARY DISEASE
     Dosage: 18 MCG
     Route: 055
     Dates: start: 20090101
  3. TRIAZOLAM [Concomitant]
     Indication: INSOMNIA
     Dates: start: 19900101
  4. NORVASC [Concomitant]
     Indication: HYPERTENSION
     Dates: start: 20110101
  5. LASIX [Concomitant]
     Indication: OEDEMA
     Dates: start: 20080101
  6. CALTRATE [Concomitant]
     Indication: OSTEOPOROSIS
     Dates: start: 20080101
  7. ASPIRIN [Concomitant]
     Indication: HYPERTENSION
     Dates: start: 19800101
  8. VALTURNA [Concomitant]
     Indication: HYPERTENSION
     Dates: start: 20100101
  9. ZETIA [Concomitant]
     Indication: BLOOD CHOLESTEROL INCREASED
     Dates: start: 20030101
  10. SPIRONOLACTONE [Concomitant]
     Indication: OEDEMA
     Dates: start: 20080101
  11. LANSOPRAZOLE [Concomitant]
     Indication: GASTROOESOPHAGEAL REFLUX DISEASE
     Dates: start: 19850101
  12. POTASSIUM [Concomitant]
     Indication: BLOOD POTASSIUM DECREASED
     Dates: start: 20060101
  13. LEXAPRO [Concomitant]
     Indication: DEPRESSION
     Dates: start: 20050101
  14. HYPERTONOCITY 5% SODIUM CHLORIDE EYE DROPS [Concomitant]
     Indication: RETINAL DISORDER
     Dates: start: 20020101
  15. IPRATROPIUM BROMIDE [Concomitant]
     Indication: CHRONIC OBSTRUCTIVE PULMONARY DISEASE
     Dates: start: 20101001
  16. AVODART [Concomitant]
     Indication: URINARY INCONTINENCE
     Dates: start: 20070101

REACTIONS (1)
  - MACULAR DEGENERATION [None]
